FAERS Safety Report 14387981 (Version 2)
Quarter: 2019Q4

REPORT INFORMATION
  Report Type: Spontaneous
  Country: US (occurrence: US)
  Receive Date: 20180115
  Receipt Date: 20191021
  Transmission Date: 20200122
  Serious: Yes (Other)
  Sender: FDA-Public Use
  Company Number: US-SA-2017SA202497

PATIENT
  Age: 50 Year
  Sex: Female
  Weight: 81.64 kg

DRUGS (11)
  1. ADRIAMYCIN [Concomitant]
     Active Substance: DOXORUBICIN HYDROCHLORIDE
     Indication: BREAST CANCER FEMALE
     Dosage: UNK 95 MG
     Dates: start: 20130531
  2. TIZANIDINE. [Concomitant]
     Active Substance: TIZANIDINE
     Dosage: UNK
     Dates: start: 2010
  3. CYTOXAN [Concomitant]
     Active Substance: CYCLOPHOSPHAMIDE
     Indication: BREAST CANCER FEMALE
     Dosage: UNK, 950 MG
     Dates: start: 20130531
  4. GABAPENTIN. [Concomitant]
     Active Substance: GABAPENTIN
     Dosage: UNK
     Dates: start: 2010
  5. TIZANIDINE. [Concomitant]
     Active Substance: TIZANIDINE
     Indication: PRODUCT USED FOR UNKNOWN INDICATION
     Dosage: UNK UNK,UNK
     Route: 065
     Dates: start: 2006
  6. NORCO [Concomitant]
     Active Substance: ACETAMINOPHEN\HYDROCODONE BITARTRATE
     Indication: PRODUCT USED FOR UNKNOWN INDICATION
     Dosage: UNK UNK,UNK
     Route: 065
     Dates: start: 2006
  7. GABAPENTIN. [Concomitant]
     Active Substance: GABAPENTIN
     Indication: PRODUCT USED FOR UNKNOWN INDICATION
     Dosage: UNK UNK,UNK
     Route: 065
     Dates: start: 2006
  8. NORCO [Concomitant]
     Active Substance: ACETAMINOPHEN\HYDROCODONE BITARTRATE
     Dosage: UNK
     Dates: start: 2010
  9. TAXOTERE [Suspect]
     Active Substance: DOCETAXEL
     Indication: BREAST CANCER FEMALE
     Dosage: 142 MG,Q3W
     Route: 042
     Dates: start: 20130531, end: 20130531
  10. DOXORUBICIN [Concomitant]
     Active Substance: DOXORUBICIN
     Indication: BREAST CANCER FEMALE
     Dosage: UNK
     Dates: start: 20130531
  11. NEOSAR [Concomitant]
     Active Substance: CYCLOPHOSPHAMIDE
     Indication: BREAST CANCER

REACTIONS (2)
  - Psychological trauma [Unknown]
  - Alopecia [Not Recovered/Not Resolved]

NARRATIVE: CASE EVENT DATE: 201503
